FAERS Safety Report 20850946 (Version 4)
Quarter: 2022Q3

REPORT INFORMATION
  Report Type: Spontaneous
  Country: US (occurrence: US)
  Receive Date: 20220519
  Receipt Date: 20220825
  Transmission Date: 20221026
  Serious: No
  Sender: FDA-Public Use
  Company Number: US-PFIZER INC-202200677377

PATIENT
  Age: 51 Year
  Sex: Female
  Weight: 70.31 kg

DRUGS (1)
  1. EUCRISA [Suspect]
     Active Substance: CRISABOROLE
     Dosage: 1 APPLICATION TOPICALLY TWICE A DAY FOR 14 DAYS
     Route: 061
     Dates: start: 20220506

REACTIONS (4)
  - Eyelid pain [Recovered/Resolved]
  - Eyelid irritation [Recovered/Resolved]
  - Application site erythema [Not Recovered/Not Resolved]
  - Inflammation [Unknown]

NARRATIVE: CASE EVENT DATE: 20220506
